FAERS Safety Report 23191118 (Version 1)
Quarter: 2023Q4

REPORT INFORMATION
  Report Type: Spontaneous
  Country: US (occurrence: US)
  Receive Date: 20231116
  Receipt Date: 20231116
  Transmission Date: 20240110
  Serious: No
  Sender: FDA-Public Use
  Company Number: US-BAYER-2023A154868

PATIENT
  Age: 49 Year
  Sex: Male

DRUGS (1)
  1. MOXIFLOXACIN [Suspect]
     Active Substance: MOXIFLOXACIN
     Indication: Osteomyelitis
     Dosage: UNK
     Route: 048

REACTIONS (2)
  - Off label use [None]
  - Incorrect product administration duration [None]
